FAERS Safety Report 10082839 (Version 1)
Quarter: 2014Q2

REPORT INFORMATION
  Report Type: Spontaneous
  Country: US (occurrence: US)
  Receive Date: 20140416
  Receipt Date: 20140416
  Transmission Date: 20141212
  Serious: Yes (Other)
  Sender: FDA-Public Use
  Company Number: PHEH2014US007180

PATIENT
  Sex: Female

DRUGS (23)
  1. EXELON PATCH [Suspect]
     Indication: DEMENTIA ALZHEIMER^S TYPE
     Dosage: 4 POINT PATCH, UNK
     Route: 062
  2. EXELON PATCH [Suspect]
     Dosage: 12 POINT PATCH, UNK
     Route: 062
  3. EXELON PATCH [Suspect]
     Dosage: 13.3 MG, DAILY
     Route: 062
  4. DIOVAN [Suspect]
     Dosage: UNK UKN, UNK
  5. TRILEPTAL [Suspect]
     Dosage: UNK UKN, UNK
  6. NUEDEXTA [Suspect]
     Dosage: UNK UKN, UNK
  7. LIPITOR [Concomitant]
     Dosage: UNK UKN, UNK
  8. OMEPRAZOLE [Concomitant]
     Dosage: UNK UKN, UNK
  9. MIRALAX [Concomitant]
     Dosage: UNK UKN, UNK
  10. ASPIRIN [Concomitant]
     Dosage: UNK UKN, UNK
  11. SINGULAIR [Concomitant]
     Dosage: UNK UKN, PRN
  12. JANUMET [Concomitant]
     Dosage: UNK UKN, UNK
  13. HYDROCHLOROTHIAZIDE [Concomitant]
     Indication: OEDEMA
     Dosage: UNK UKN, UNK
  14. DOCUSATE [Concomitant]
     Dosage: UNK UKN, UNK
  15. NAMENDA [Concomitant]
     Dosage: 10 MG, BID
  16. COGENTIN [Concomitant]
     Dosage: UNK UKN, UNK
  17. MAGNESIA//MAGNESIUM OXIDE [Concomitant]
     Dosage: UNK UKN, AS NEEDED
  18. ADVAIR [Concomitant]
     Dosage: UNK UKN, AS NEEDED
  19. GABAPENTIN [Concomitant]
     Dosage: 300 MG, BID
  20. ZYPREXA [Concomitant]
     Dosage: 2.5 MG, TID
  21. XOPENEX [Concomitant]
     Dosage: UNK UKN, AS NEEDED
  22. DULCOLAX [Concomitant]
     Dosage: UNK UKN, AS NEEDED
  23. CYMBALTA [Concomitant]
     Dosage: UNK UKN, UNK

REACTIONS (5)
  - Tourette^s disorder [Unknown]
  - Screaming [Unknown]
  - Speech disorder [Unknown]
  - Tic [Unknown]
  - Logorrhoea [Unknown]
